FAERS Safety Report 9103536 (Version 5)
Quarter: 2014Q1

REPORT INFORMATION
  Report Type: Report from Study
  Country: JP (occurrence: JP)
  Receive Date: 20130219
  Receipt Date: 20140326
  Transmission Date: 20141002
  Serious: Yes (Other)
  Sender: FDA-Public Use
  Company Number: JP-AMGEN-JPNCT2013010360

PATIENT
  Age: 64 Year
  Sex: Female
  Weight: 59 kg

DRUGS (18)
  1. DENOSUMAB [Suspect]
     Indication: METASTASES TO BONE
     Dosage: 120 MG, UNK
     Route: 058
     Dates: start: 20120724
  2. ZOMETA [Concomitant]
     Dosage: UNK
     Route: 042
     Dates: start: 20080422, end: 20120703
  3. CALCIUM LACTATE [Concomitant]
     Dosage: UNK
     Route: 048
     Dates: start: 20120731, end: 20120821
  4. ROCALTROL [Concomitant]
     Dosage: UNK
     Route: 048
     Dates: start: 20120731, end: 20130108
  5. TAXOTERE [Concomitant]
     Route: 065
     Dates: start: 20061005, end: 20070123
  6. DECADRON                           /00016001/ [Concomitant]
     Dosage: EVERY
     Route: 065
     Dates: start: 20061005, end: 20110215
  7. CYCLOPHOSPHAMIDE [Concomitant]
     Route: 065
     Dates: start: 20070206, end: 20070508
  8. EPIRUBICIN [Concomitant]
     Route: 065
     Dates: start: 20070206, end: 20070508
  9. FLUOROURACIL [Concomitant]
     Route: 065
     Dates: start: 20070206, end: 20070508
  10. TAXOL [Concomitant]
     Route: 065
     Dates: start: 20071030, end: 20100615
  11. VINORELBINE [Concomitant]
     Dosage: EVERY
     Route: 065
     Dates: start: 20100713, end: 20110215
  12. AROMASIN [Concomitant]
     Route: 065
     Dates: start: 20080325, end: 20110110
  13. FEMARA [Concomitant]
     Dosage: UNK
     Route: 065
     Dates: start: 20110111, end: 20121015
  14. GEMCITABINE [Concomitant]
     Dosage: EVERY
     Route: 065
     Dates: start: 20110419, end: 20110809
  15. XELODA [Concomitant]
     Route: 065
     Dates: start: 20110823, end: 20120124
  16. ENDOXAN                            /00021101/ [Concomitant]
     Route: 065
     Dates: start: 20110823, end: 20120124
  17. HALAVEN [Concomitant]
     Dosage: UNK
     Route: 065
     Dates: start: 20120117, end: 20121225
  18. FASLODEX [Concomitant]
     Dosage: UNK
     Route: 065
     Dates: start: 20121016

REACTIONS (2)
  - Atypical femur fracture [Recovering/Resolving]
  - Hypocalcaemia [Recovered/Resolved]
